FAERS Safety Report 8587385-X (Version None)
Quarter: 2012Q3

REPORT INFORMATION
  Report Type: 
  Country: None (occurrence: None)
  Receive Date: 20120810
  Receipt Date: 20111213
  Transmission Date: 20120928
  Serious: Yes (Other)
  Sender: FDA-Public Use
  Company Number: US-ASTRAZENECA-2011SE75615

PATIENT
  Sex: Female

DRUGS (2)
  1. ARIMIDEX [Suspect]
     Route: 048
     Dates: start: 20100601
  2. TAMOXIFEN CITRATE [Suspect]
     Route: 048

REACTIONS (2)
  - METASTASES TO BONE [None]
  - ALOPECIA [None]
